FAERS Safety Report 9858629 (Version 2)
Quarter: 2014Q1

REPORT INFORMATION
  Report Type: Spontaneous
  Country: US (occurrence: US)
  Receive Date: 20140131
  Receipt Date: 20140205
  Transmission Date: 20141002
  Serious: Yes (Other)
  Sender: FDA-Public Use
  Company Number: US-ROCHE-1339088

PATIENT
  Age: 42 Year
  Sex: Male

DRUGS (16)
  1. BEVACIZUMAB [Suspect]
     Indication: COLORECTAL CANCER METASTATIC
     Route: 065
     Dates: start: 2009
  2. CAPECITABINE [Suspect]
     Indication: COLORECTAL CANCER METASTATIC
     Dosage: 1 CYCLE.
     Route: 065
  3. CAPECITABINE [Suspect]
     Dosage: 1 CYCLE.
     Route: 065
     Dates: start: 201109, end: 201110
  4. CAPECITABINE [Suspect]
     Dosage: 6 CYCLES AFTER 6 WEEKS OF LIVER TRANSPLANTATION.
     Route: 065
  5. FLUOROURACIL [Suspect]
     Indication: COLORECTAL CANCER METASTATIC
     Route: 065
     Dates: start: 2009
  6. FOLINIC ACID [Suspect]
     Indication: COLORECTAL CANCER METASTATIC
     Route: 065
     Dates: start: 2009
  7. OXALIPLATIN [Suspect]
     Indication: COLORECTAL CANCER METASTATIC
     Route: 065
     Dates: start: 2009
  8. OXALIPLATIN [Suspect]
     Dosage: 6 CYCLES AFTER 6 WEEKS OF LIVER TRANSPLANTATION.
     Route: 065
  9. IRINOTECAN [Suspect]
     Indication: COLORECTAL CANCER METASTATIC
     Dosage: 1 CYCLE.
     Route: 065
  10. IRINOTECAN [Suspect]
     Dosage: 18 CYCLE.
     Route: 013
     Dates: start: 201006
  11. IRINOTECAN [Suspect]
     Dosage: 6 CYCLES.
     Route: 065
  12. IRINOTECAN [Suspect]
     Route: 065
     Dates: start: 201301
  13. CETUXIMAB [Suspect]
     Indication: COLORECTAL CANCER METASTATIC
     Dosage: 18 CYCLES.
     Route: 013
     Dates: start: 201009, end: 201108
  14. SUTENT [Suspect]
     Indication: COLORECTAL CANCER METASTATIC
     Dosage: 1 CYCLE.
     Route: 065
     Dates: start: 201109, end: 201110
  15. PANITUMUMAB [Suspect]
     Indication: COLORECTAL CANCER METASTATIC
     Dosage: 6 CYCLES.
     Route: 065
  16. AFLIBERCEPT [Suspect]
     Indication: COLORECTAL CANCER METASTATIC
     Route: 065
     Dates: start: 201301

REACTIONS (1)
  - Subacute hepatic failure [Unknown]
